FAERS Safety Report 25294343 (Version 1)
Quarter: 2025Q2

REPORT INFORMATION
  Report Type: Spontaneous
  Country: US (occurrence: US)
  Receive Date: 20250511
  Receipt Date: 20250511
  Transmission Date: 20250717
  Serious: No
  Sender: SANOFI AVENTIS
  Company Number: US-SA-2025SA127801

PATIENT
  Age: 55 Year
  Sex: Female
  Weight: 95 kg

DRUGS (1)
  1. DUPIXENT [Suspect]
     Active Substance: DUPILUMAB
     Indication: Dermatitis atopic
     Dosage: 300 MG, QOW
     Route: 058
     Dates: start: 2023, end: 202502

REACTIONS (7)
  - Weight increased [Recovering/Resolving]
  - Onychomycosis [Unknown]
  - Bone pain [Unknown]
  - Nail discolouration [Unknown]
  - Skin exfoliation [Unknown]
  - Pruritus [Unknown]
  - Urticaria [Unknown]

NARRATIVE: CASE EVENT DATE: 20250201
